FAERS Safety Report 9392301 (Version 6)
Quarter: 2017Q2

REPORT INFORMATION
  Report Type: Spontaneous
  Country: JP (occurrence: JP)
  Receive Date: 20130710
  Receipt Date: 20170605
  Transmission Date: 20170830
  Serious: Yes (Death, Hospitalization, Other)
  Sender: FDA-Public Use
  Company Number: JP-009507513-1307JPN003226

PATIENT
  Age: 74 Year
  Sex: Male

DRUGS (10)
  1. METHYLPREDNISOLONE ACETATE. [Concomitant]
     Active Substance: METHYLPREDNISOLONE ACETATE
     Route: 042
  2. DEXAMETHASONE ACETATE [Concomitant]
     Active Substance: DEXAMETHASONE ACETATE
     Dosage: 9.9 MG, QD
     Route: 042
  3. BASEN [Concomitant]
     Active Substance: VOGLIBOSE
     Dosage: DAILY DOSE UNKNOWN, FORMULATION: POR
     Route: 048
  4. JANUVIA [Suspect]
     Active Substance: SITAGLIPTIN PHOSPHATE
     Indication: TYPE 2 DIABETES MELLITUS
     Dosage: 50 MG, QD
     Route: 048
  5. MINOCYCLINE HYDROCHLORIDE. [Concomitant]
     Active Substance: MINOCYCLINE HYDROCHLORIDE
     Dosage: 200 MG, UNK
     Route: 048
  6. BASEN [Concomitant]
     Active Substance: VOGLIBOSE
     Dosage: UNK
     Route: 048
  7. PREDNISOLONE. [Concomitant]
     Active Substance: PREDNISOLONE
     Dosage: 60 MG, QD
     Route: 048
  8. PREDNISOLONE. [Concomitant]
     Active Substance: PREDNISOLONE
     Dosage: 0.6 MG/KG, QD
     Route: 048
  9. BARACLUDE [Concomitant]
     Active Substance: ENTECAVIR
     Indication: ANTIVIRAL PROPHYLAXIS
     Dosage: UNK
     Route: 048
  10. NICOTINAMIDE REDERMA [Concomitant]
     Dosage: 900 MG, QD

REACTIONS (5)
  - Obliterative bronchiolitis [Fatal]
  - Asthma [Fatal]
  - Pemphigoid [Unknown]
  - Hypersensitivity [Unknown]
  - Respiratory failure [Fatal]
